FAERS Safety Report 17708455 (Version 10)
Quarter: 2021Q1

REPORT INFORMATION
  Report Type: Report from Study
  Country: BR (occurrence: BR)
  Receive Date: 20200426
  Receipt Date: 20210122
  Transmission Date: 20210419
  Serious: Yes (Other)
  Sender: FDA-Public Use
  Company Number: NVSC2020BR022356

PATIENT
  Age: 63 Year
  Sex: Female
  Weight: 60 kg

DRUGS (6)
  1. COSENTYX [Suspect]
     Active Substance: SECUKINUMAB
     Indication: PSORIATIC ARTHROPATHY
     Dosage: 2 DF, QMO (2 AMPOULES)
     Route: 058
     Dates: start: 20171214
  2. COSENTYX [Suspect]
     Active Substance: SECUKINUMAB
     Indication: PSORIASIS
     Dosage: UNK
     Route: 065
     Dates: start: 20191110
  3. ACETYLSALICYLIC ACID [Concomitant]
     Active Substance: ASPIRIN
     Indication: BLOOD DISORDER
     Dosage: 1 DF, QD
     Route: 048
  4. COSENTYX [Suspect]
     Active Substance: SECUKINUMAB
     Dosage: 300 MG, QMO
     Route: 065
  5. COSENTYX [Suspect]
     Active Substance: SECUKINUMAB
     Dosage: 150 MG
     Route: 065
     Dates: start: 20200914
  6. METFORMINE [Concomitant]
     Active Substance: METFORMIN HYDROCHLORIDE
     Indication: DIABETES MELLITUS
     Dosage: UNK UNK, QMO
     Route: 048

REACTIONS (14)
  - Psoriasis [Recovering/Resolving]
  - Spinal fracture [Recovering/Resolving]
  - Head discomfort [Unknown]
  - Nervousness [Not Recovered/Not Resolved]
  - Anger [Unknown]
  - Foot fracture [Recovered/Resolved with Sequelae]
  - Skin disorder [Not Recovered/Not Resolved]
  - Gait disturbance [Recovering/Resolving]
  - Spinal cord injury [Recovering/Resolving]
  - Blister [Unknown]
  - Spinal pain [Recovering/Resolving]
  - Pain [Recovered/Resolved with Sequelae]
  - Fall [Recovered/Resolved with Sequelae]
  - Product dose omission issue [Unknown]

NARRATIVE: CASE EVENT DATE: 20191223
